FAERS Safety Report 5468288-6 (Version None)
Quarter: 2007Q3

REPORT INFORMATION
  Report Type: 
  Country: None (occurrence: None)
  Receive Date: 20070921
  Receipt Date: 20070912
  Transmission Date: 20080115
  Serious: Yes (Hospitalization)
  Sender: FDA-Public Use
  Company Number: S07-FRA-03138-01

PATIENT
  Age: 40 Year
  Sex: Male

DRUGS (6)
  1. CITALOPRAM HYDROBROMIDE [Suspect]
     Indication: MAJOR DEPRESSION
     Dosage: 20 MG QD PO
     Route: 048
     Dates: start: 20060326, end: 20061201
  2. ATARAX [Suspect]
     Indication: ANXIETY
     Dosage: 400 MG QD PO
     Route: 048
     Dates: start: 20060326, end: 20061201
  3. ATARAX [Suspect]
     Dates: start: 20070401
  4. TIMOLOL MALEATE [Concomitant]
  5. GAVISCON [Concomitant]
  6. IMOVANE (ZOPICLONE) [Concomitant]

REACTIONS (2)
  - GRAND MAL CONVULSION [None]
  - MYOCLONIC EPILEPSY [None]
